FAERS Safety Report 12822651 (Version 1)
Quarter: 2016Q4

REPORT INFORMATION
  Report Type: Spontaneous
  Country: US (occurrence: US)
  Receive Date: 20161007
  Receipt Date: 20161007
  Transmission Date: 20170207
  Serious: No
  Sender: FDA-Public Use
  Company Number: US-PFIZER INC-2015427411

PATIENT
  Age: 69 Year
  Sex: Female
  Weight: 83.45 kg

DRUGS (1)
  1. IBRANCE [Suspect]
     Active Substance: PALBOCICLIB
     Indication: BREAST CANCER METASTATIC
     Dosage: 125 MG, CYCLIC, (ONE DAILY FOR 21 DAYS AND 7 DAYS OFF)
     Route: 048
     Dates: start: 201601

REACTIONS (1)
  - Neoplasm progression [Not Recovered/Not Resolved]
